FAERS Safety Report 18497408 (Version 1)
Quarter: 2020Q4

REPORT INFORMATION
  Report Type: Spontaneous
  Country: FR (occurrence: FR)
  Receive Date: 20201112
  Receipt Date: 20201112
  Transmission Date: 20210114
  Serious: Yes (Death, Hospitalization)
  Sender: FDA-Public Use
  Company Number: FR-BIOVITRUM-2020FR4578

PATIENT
  Age: 58 Year
  Sex: Male

DRUGS (2)
  1. COLCHICINE. [Concomitant]
     Active Substance: COLCHICINE
     Dosage: SINCE 40 YEARS (UNTIL 2020)
  2. KINERET [Suspect]
     Active Substance: ANAKINRA
     Indication: FAMILIAL MEDITERRANEAN FEVER
     Route: 065

REACTIONS (2)
  - COVID-19 [Fatal]
  - Cardiac failure [Fatal]

NARRATIVE: CASE EVENT DATE: 2020
